FAERS Safety Report 10067760 (Version 1)
Quarter: 2014Q2

REPORT INFORMATION
  Report Type: Spontaneous
  Country: US (occurrence: None)
  Receive Date: 20140401
  Receipt Date: 20140401
  Transmission Date: 20141212
  Serious: Yes (Hospitalization)
  Sender: FDA-Public Use
  Company Number: PHEH2013US006169

PATIENT
  Age: 23 Year
  Sex: Female

DRUGS (1)
  1. TASIGNA (AMN107) UNKNOWN [Suspect]
     Route: 048

REACTIONS (2)
  - Pancreatitis [None]
  - Lipase increased [None]
